FAERS Safety Report 17121458 (Version 1)
Quarter: 2019Q4

REPORT INFORMATION
  Report Type: Spontaneous
  Country: ES (occurrence: ES)
  Receive Date: 20191206
  Receipt Date: 20191206
  Transmission Date: 20200122
  Serious: Yes (Other)
  Sender: FDA-Public Use
  Company Number: ES-MYLANLABS-2019M1119415

PATIENT
  Age: 36 Year
  Sex: Female

DRUGS (2)
  1. DEXKETOPROFEN TROMETAMOL [Interacting]
     Active Substance: DEXKETOPROFEN TROMETAMOL
     Indication: FIBROMYALGIA
     Dosage: UNK
     Route: 048
     Dates: start: 201907, end: 20190704
  2. IBUPROFEN. [Suspect]
     Active Substance: IBUPROFEN
     Indication: FIBROMYALGIA
     Dosage: UNK
     Route: 048
     Dates: start: 201907, end: 20190704

REACTIONS (3)
  - Product administration error [Unknown]
  - Haematemesis [Unknown]
  - Drug interaction [Unknown]

NARRATIVE: CASE EVENT DATE: 20190704
